FAERS Safety Report 5578191-9 (Version None)
Quarter: 2007Q4

REPORT INFORMATION
  Report Type: 
  Country: None (occurrence: None)
  Receive Date: 20071231
  Receipt Date: 20071219
  Transmission Date: 20080405
  Serious: Yes (Hospitalization, Other)
  Sender: FDA-Public Use
  Company Number: US-PFIZER INC-2007071550

PATIENT
  Sex: Female
  Weight: 78 kg

DRUGS (9)
  1. CHANTIX [Suspect]
     Indication: TOBACCO ABUSE
     Route: 048
     Dates: start: 20070808, end: 20070820
  2. MONTELUKAST SODIUM [Concomitant]
  3. FOSAMAX [Concomitant]
  4. LIPITOR [Concomitant]
  5. ALBUTEROL [Concomitant]
     Route: 055
  6. AMITRIPTLINE HCL [Concomitant]
  7. CALCIUM [Concomitant]
  8. VITAMINS [Concomitant]
  9. ESTRADIOL [Concomitant]

REACTIONS (5)
  - ARRHYTHMIA [None]
  - CHEST DISCOMFORT [None]
  - CHEST PAIN [None]
  - DYSPNOEA [None]
  - PALPITATIONS [None]
